FAERS Safety Report 8507508-8 (Version None)
Quarter: 2012Q3

REPORT INFORMATION
  Report Type: 
  Country: None (occurrence: None)
  Receive Date: 20120713
  Receipt Date: 20120711
  Transmission Date: 20120928
  Serious: Yes (Hospitalization)
  Sender: FDA-Public Use
  Company Number: FR-AMGEN-FRASP2012042698

PATIENT
  Age: 64 Year
  Sex: Male

DRUGS (6)
  1. ALDACTONE [Concomitant]
     Dosage: UNK
     Route: 048
     Dates: start: 20120607, end: 20120608
  2. ARANESP [Suspect]
     Indication: PRODUCT USED FOR UNKNOWN INDICATION
     Dosage: 500 MUG, UNK
     Route: 058
     Dates: start: 20120522, end: 20120605
  3. CARBOPLATIN [Concomitant]
     Dosage: UNK
     Route: 042
     Dates: start: 20120514, end: 20120604
  4. AMOXICILLIN [Concomitant]
     Dosage: UNK
     Route: 048
     Dates: start: 20120529
  5. DOCETAXEL [Concomitant]
     Dosage: 10 MG/ML, UNK
     Route: 042
     Dates: start: 20120514, end: 20120604
  6. NEULASTA [Suspect]
     Indication: CHEMOTHERAPY
     Dosage: UNK
     Route: 058
     Dates: start: 20120605, end: 20120605

REACTIONS (5)
  - MOUTH ULCERATION [None]
  - ERYTHEMA [None]
  - ECZEMA [None]
  - RASH MACULO-PAPULAR [None]
  - SKIN EXFOLIATION [None]
